FAERS Safety Report 9747510 (Version 3)
Quarter: 2013Q4

REPORT INFORMATION
  Report Type: Spontaneous
  Country: US (occurrence: US)
  Receive Date: 20131212
  Receipt Date: 20131218
  Transmission Date: 20140711
  Serious: Yes (Other)
  Sender: FDA-Public Use
  Company Number: US-BEH-2013035414

PATIENT
  Age: 54 Year
  Sex: Female
  Weight: 63 kg

DRUGS (24)
  1. HIZENTRA [Suspect]
     Dosage: 4 SITES OVER 1 HOUR
     Route: 058
     Dates: start: 20130404
  2. HIZENTRA [Suspect]
     Indication: IMMUNODEFICIENCY COMMON VARIABLE
     Dosage: 4 SITES OVER ONE HOUR
     Route: 058
     Dates: start: 20130404
  3. HIZENTRA [Suspect]
     Dosage: OVER 1 HOUR
     Route: 058
  4. HIZENTRA [Suspect]
     Dosage: OVER 1 HOUR
     Route: 058
  5. KLONOPIN [Concomitant]
  6. NORTRIPTYLINE [Concomitant]
  7. EPI-PEN [Concomitant]
     Indication: PREMEDICATION
  8. BOTOX [Concomitant]
  9. LEVOTHYROXINE [Concomitant]
  10. LORAZEPAM [Concomitant]
  11. PROTONIX [Concomitant]
  12. AMBIEN [Concomitant]
  13. LASIX [Concomitant]
  14. TYLENOL EXTRA STRENGTH [Concomitant]
  15. FLUTICASONE [Concomitant]
  16. ZITHROMAX [Concomitant]
  17. LIPITOR [Concomitant]
  18. TRICOR [Concomitant]
  19. SYMBICORT [Concomitant]
  20. TENORMIN [Concomitant]
  21. BENADRYL [Concomitant]
     Indication: PREMEDICATION
  22. ASPIRIN [Concomitant]
  23. WELLBUTRIN [Concomitant]
  24. ZANTAC [Concomitant]

REACTIONS (3)
  - Pericardial effusion [Not Recovered/Not Resolved]
  - Rash [Unknown]
  - Epistaxis [Unknown]
